FAERS Safety Report 25279326 (Version 1)
Quarter: 2025Q2

REPORT INFORMATION
  Report Type: Spontaneous
  Country: US (occurrence: None)
  Receive Date: 20250507
  Receipt Date: 20250507
  Transmission Date: 20250716
  Serious: Yes (Hospitalization)
  Sender: FDA-CTU
  Company Number: None

PATIENT
  Sex: Male

DRUGS (1)
  1. OPSUMIT [Suspect]
     Active Substance: MACITENTAN
     Indication: Pulmonary arterial hypertension
     Dosage: 10 MG DAILY ORAL ?
     Route: 048
     Dates: start: 20150311

REACTIONS (8)
  - Oxygen consumption increased [None]
  - Decreased activity [None]
  - General physical health deterioration [None]
  - Peripheral swelling [None]
  - Joint swelling [None]
  - Weight abnormal [None]
  - Fluid retention [None]
  - Dyspnoea [None]
